FAERS Safety Report 6880469-3 (Version None)
Quarter: 2010Q3

REPORT INFORMATION
  Report Type: 
  Country: None (occurrence: None)
  Receive Date: 20100727
  Receipt Date: 20100719
  Transmission Date: 20110219
  Serious: Yes (Death, Life-Threatening, Disabling, Other)
  Sender: FDA-Public Use
  Company Number: A0867631A

PATIENT
  Age: 55 Year
  Sex: Female

DRUGS (9)
  1. ZOFRAN [Suspect]
     Indication: NAUSEA
     Dosage: 8MG AS REQUIRED
     Route: 048
     Dates: start: 20100615
  2. CHEMOTHERAPY [Concomitant]
  3. UNKNOWN [Concomitant]
  4. PAIN MEDICATIONS [Concomitant]
  5. NEURONTIN [Concomitant]
  6. OXYCONTIN [Concomitant]
  7. MORPHINE [Concomitant]
  8. FENTANYL-75 [Concomitant]
  9. XANAX [Concomitant]

REACTIONS (1)
  - PANCREATIC CARCINOMA [None]
